FAERS Safety Report 14715119 (Version 7)
Quarter: 2023Q1

REPORT INFORMATION
  Report Type: Spontaneous
  Country: ES (occurrence: ES)
  Receive Date: 20180404
  Receipt Date: 20230329
  Transmission Date: 20230418
  Serious: Yes (Life-Threatening, Hospitalization, Other)
  Sender: FDA-Public Use
  Company Number: PHHY2017ES201990

PATIENT
  Age: 24 Year
  Sex: Female

DRUGS (4)
  1. QUETIAPINE FUMARATE [Suspect]
     Active Substance: QUETIAPINE FUMARATE
     Indication: Personality disorder
     Dosage: UNK
     Route: 065
  2. DULOXETINE HYDROCHLORIDE [Suspect]
     Active Substance: DULOXETINE HYDROCHLORIDE
     Indication: Personality disorder
     Dosage: UNK
     Route: 065
  3. TOPIRAMATE [Suspect]
     Active Substance: TOPIRAMATE
     Indication: Personality disorder
     Dosage: UNK
     Route: 065
  4. CLORAZEPATE DIPOTASSIUM [Suspect]
     Active Substance: CLORAZEPATE DIPOTASSIUM
     Indication: Personality disorder
     Dosage: UNK
     Route: 065

REACTIONS (8)
  - Loss of consciousness [Recovered/Resolved]
  - Blood creatine phosphokinase increased [Unknown]
  - Intentional overdose [Unknown]
  - Coma blister [Recovered/Resolved]
  - Coma scale abnormal [Recovering/Resolving]
  - Drug screen positive [Unknown]
  - Pallor [Recovering/Resolving]
  - Mydriasis [Recovering/Resolving]
